FAERS Safety Report 5026654-7 (Version None)
Quarter: 2006Q2

REPORT INFORMATION
  Report Type: 
  Country: None (occurrence: None)
  Receive Date: 20060615
  Receipt Date: 20060613
  Transmission Date: 20061013
  Serious: Yes (Other)
  Sender: FDA-Public Use
  Company Number: CA-GLAXOSMITHKLINE-A0609022A

PATIENT
  Age: 40 Year
  Sex: Male

DRUGS (21)
  1. TIMENTIN [Suspect]
     Indication: DRUG USE FOR UNKNOWN INDICATION
     Dosage: 3.1G TWICE PER DAY
     Route: 042
  2. GENTAMICIN [Suspect]
     Indication: DRUG USE FOR UNKNOWN INDICATION
     Dosage: 80MG ALTERNATE DAYS
     Route: 042
  3. AMLODIPINE [Concomitant]
     Route: 048
  4. ARANESP [Concomitant]
     Route: 042
  5. CALCIUM CARBONATE [Concomitant]
     Route: 048
  6. CIPRO [Concomitant]
     Route: 048
  7. GABAPENTIN [Concomitant]
     Route: 048
  8. GRAVOL TAB [Concomitant]
     Route: 042
  9. HEPARIN [Concomitant]
     Route: 058
  10. HYDRALAZINE HCL [Concomitant]
     Route: 048
  11. HYDROMORPHONE HCL [Concomitant]
     Route: 048
  12. INSULIN [Concomitant]
  13. IRON SUCROSE [Concomitant]
     Route: 042
  14. LORAZEPAM [Concomitant]
     Route: 048
  15. METOPROLOL TARTRATE [Concomitant]
     Route: 048
  16. MINOXIDIL [Concomitant]
     Route: 048
  17. PROCHLORPERAZINE [Concomitant]
     Route: 042
  18. QUININE SULFATE [Concomitant]
     Route: 048
  19. TERAZOSIN HCL [Concomitant]
     Route: 048
  20. RAMIPRIL [Concomitant]
     Route: 048
  21. UNSPECIFIED MEDICATION [Concomitant]
     Route: 048

REACTIONS (5)
  - ALANINE AMINOTRANSFERASE INCREASED [None]
  - ASPARTATE AMINOTRANSFERASE INCREASED [None]
  - BLOOD ALKALINE PHOSPHATASE INCREASED [None]
  - GAMMA-GLUTAMYLTRANSFERASE INCREASED [None]
  - HEPATIC ENZYME INCREASED [None]
